FAERS Safety Report 9929277 (Version 1)
Quarter: 2014Q1

REPORT INFORMATION
  Report Type: Spontaneous
  Country: US (occurrence: None)
  Receive Date: 20140109
  Receipt Date: 20140109
  Transmission Date: 20141002
  Serious: Yes (Other)
  Sender: FDA-Public Use
  Company Number: 372614

PATIENT
  Age: 59 Year
  Sex: Female

DRUGS (1)
  1. LEVEMIR [Suspect]
     Indication: TYPE 2 DIABETES MELLITUS
     Dosage: 10 U QD, SUBCUTANEOUS
     Route: 058
     Dates: start: 201206, end: 20130305

REACTIONS (2)
  - Blood glucose increased [None]
  - Urinary tract infection [None]
